FAERS Safety Report 4700385-2 (Version None)
Quarter: 2005Q2

REPORT INFORMATION
  Report Type: 
  Country: None (occurrence: None)
  Receive Date: 20050209
  Receipt Date: 20050209
  Transmission Date: 20051028
  Serious: Yes (Other)
  Sender: FDA-Public Use
  Company Number: None

PATIENT
  Sex: Female

DRUGS (2)
  1. REMERON SOLTAB [Suspect]
     Indication: COLON CANCER
     Dosage: TAKE 60MG DAILY @ HS
     Dates: start: 20040401
  2. REMERON SOLTAB [Suspect]
     Indication: DEPRESSION
     Dosage: TAKE 60MG DAILY @ HS
     Dates: start: 20040401

REACTIONS (3)
  - DEPRESSION [None]
  - NAUSEA [None]
  - THERAPEUTIC RESPONSE UNEXPECTED WITH DRUG SUBSTITUTION [None]
